FAERS Safety Report 14973966 (Version 1)
Quarter: 2018Q2

REPORT INFORMATION
  Report Type: Spontaneous
  Country: US (occurrence: US)
  Receive Date: 20180605
  Receipt Date: 20180605
  Transmission Date: 20180711
  Serious: Yes (Other)
  Sender: FDA-Public Use
  Company Number: US-SA-2017SA265120

PATIENT
  Age: 60 Year
  Sex: Female
  Weight: 86.18 kg

DRUGS (15)
  1. TAXOTERE [Suspect]
     Active Substance: DOCETAXEL
     Indication: BREAST CANCER STAGE III
     Dosage: 147 MG,QCY
     Route: 051
     Dates: start: 20110708, end: 20110708
  2. FUROSEMIDE. [Concomitant]
     Active Substance: FUROSEMIDE
  3. ELLENCE [Concomitant]
     Active Substance: EPIRUBICIN HYDROCHLORIDE
  4. EZETIMIBE. [Concomitant]
     Active Substance: EZETIMIBE
  5. TAXOTERE [Suspect]
     Active Substance: DOCETAXEL
     Dosage: 147 MG,QCY
     Route: 051
     Dates: start: 20111021, end: 20111021
  6. LEVOTHYROXINE. [Concomitant]
     Active Substance: LEVOTHYROXINE
  7. ALENDRONATE [Concomitant]
     Active Substance: ALENDRONATE SODIUM
  8. AMLODIPINE [Concomitant]
     Active Substance: AMLODIPINE BESYLATE
  9. CYTOXAN [Concomitant]
     Active Substance: CYCLOPHOSPHAMIDE
     Dosage: 980 MG
  10. ANASTROZOLE. [Concomitant]
     Active Substance: ANASTROZOLE
  11. EPIRUBICIN [Concomitant]
     Active Substance: EPIRUBICIN
     Dosage: 147 MG
  12. ATORVASTATIN [Concomitant]
     Active Substance: ATORVASTATIN
  13. METFORMIN [Concomitant]
     Active Substance: METFORMIN HYDROCHLORIDE
  14. NEOSAR [Concomitant]
     Active Substance: CYCLOPHOSPHAMIDE
  15. LOSARTAN. [Concomitant]
     Active Substance: LOSARTAN

REACTIONS (2)
  - Alopecia [Recovering/Resolving]
  - Psychological trauma [Unknown]

NARRATIVE: CASE EVENT DATE: 201107
